FAERS Safety Report 4549963-4 (Version None)
Quarter: 2005Q1

REPORT INFORMATION
  Report Type: 
  Country: None (occurrence: None)
  Receive Date: 20050110
  Receipt Date: 20041228
  Transmission Date: 20050727
  Serious: Yes (Other)
  Sender: FDA-Public Use
  Company Number: 0400043EN0020P

PATIENT
  Age: 16 Year
  Sex: Female
  Weight: 61 kg

DRUGS (8)
  1. ONCASPAR [Suspect]
     Indication: ACUTE LYMPHOCYTIC LEUKAEMIA
     Dosage: 3975 IU IM DAY IN AN 8
     Route: 030
     Dates: start: 20040819, end: 20040826
  2. VINCRISTINE [Concomitant]
  3. DECADRON [Concomitant]
  4. ZOFRAN [Concomitant]
  5. PROVERA [Concomitant]
  6. ZANTAC [Concomitant]
  7. DIFLUCAN [Concomitant]
  8. BACTRIM [Concomitant]

REACTIONS (4)
  - BLOOD CHOLESTEROL INCREASED [None]
  - BLOOD TRIGLYCERIDES INCREASED [None]
  - HAEMOGLOBIN DECREASED [None]
  - HEADACHE [None]
